FAERS Safety Report 13472455 (Version 1)
Quarter: 2017Q2

REPORT INFORMATION
  Report Type: Spontaneous
  Country: US (occurrence: US)
  Receive Date: 20170422
  Receipt Date: 20170422
  Transmission Date: 20170830
  Serious: Yes (Other)
  Sender: FDA-Public Use
  Company Number: None

PATIENT
  Age: 54 Year
  Sex: Male
  Weight: 109.3 kg

DRUGS (6)
  1. RAMIPRIL. [Suspect]
     Active Substance: RAMIPRIL
  2. SALMON OIL [Concomitant]
     Active Substance: FISH OIL
  3. MULTI-VITAMIN [Concomitant]
     Active Substance: .ALPHA.-TOCOPHEROL ACETATE, DL-\ASCORBIC ACID\CYANOCOBALAMIN\FLUORIDE ION\FOLIC ACID\NIACIN\PYRIDOXINE\RIBOFLAVIN\THIAMINE\VITAMIN A\VITAMIN D
  4. BABY ASPIRIN [Concomitant]
     Active Substance: ASPIRIN
  5. VITAMIN D [Concomitant]
     Active Substance: CHOLECALCIFEROL
  6. DIOSMIN [Concomitant]
     Active Substance: DIOSMIN

REACTIONS (11)
  - Exercise lack of [None]
  - Fatigue [None]
  - Blood potassium increased [None]
  - Blood glucose increased [None]
  - Non-24-hour sleep-wake disorder [None]
  - Disorientation [None]
  - Glycosylated haemoglobin increased [None]
  - Dizziness [None]
  - Weight increased [None]
  - Asthenia [None]
  - Therapy change [None]

NARRATIVE: CASE EVENT DATE: 20170411
